FAERS Safety Report 5938186-X (Version None)
Quarter: 2008Q4

REPORT INFORMATION
  Report Type: 
  Country: None (occurrence: None)
  Receive Date: 20081031
  Receipt Date: 20081020
  Transmission Date: 20090506
  Serious: Yes (Life-Threatening)
  Sender: FDA-Public Use
  Company Number: GB-PFIZER INC-2008088874

PATIENT
  Age: 63 Year
  Sex: Male

DRUGS (10)
  1. DOXYCYCLINE [Suspect]
     Indication: ROSACEA
     Route: 048
     Dates: start: 20080512, end: 20080909
  2. ACETYLSALICYLIC ACID SRT [Concomitant]
     Dates: start: 20070626
  3. ACETAMINOPHEN W/ CODEINE [Concomitant]
     Route: 048
     Dates: start: 20021021
  4. DILTIAZEM HCL [Concomitant]
     Route: 048
     Dates: start: 20030709
  5. DOXAZOSIN MESYLATE [Concomitant]
     Route: 048
     Dates: start: 20041115
  6. MYCOPHENOLATE MOFETIL [Concomitant]
     Route: 048
     Dates: start: 20031223
  7. OMEPRAZOLE [Concomitant]
     Route: 048
     Dates: start: 20030508
  8. PERINDOPRIL [Concomitant]
     Route: 048
     Dates: start: 20040316
  9. PRAVASTATIN [Concomitant]
     Route: 048
     Dates: start: 20051111
  10. PREDNISOLONE [Concomitant]
     Route: 048
     Dates: start: 20030508

REACTIONS (5)
  - APATHY [None]
  - DEPRESSED MOOD [None]
  - DISTURBANCE IN ATTENTION [None]
  - IRRITABILITY [None]
  - SUICIDAL IDEATION [None]
